FAERS Safety Report 20265647 (Version 2)
Quarter: 2022Q1

REPORT INFORMATION
  Report Type: Spontaneous
  Country: JP (occurrence: JP)
  Receive Date: 20211231
  Receipt Date: 20220209
  Transmission Date: 20220423
  Serious: Yes (Hospitalization, Other)
  Sender: FDA-Public Use
  Company Number: JP-SA-SAC20211231000018

PATIENT
  Age: 88 Year
  Sex: Female

DRUGS (14)
  1. XYZAL [Suspect]
     Active Substance: LEVOCETIRIZINE DIHYDROCHLORIDE
     Indication: Product used for unknown indication
     Dosage: UNK
     Route: 065
  2. FAMOTIDINE [Suspect]
     Active Substance: FAMOTIDINE
     Indication: Product used for unknown indication
     Dosage: ONGOING
     Route: 065
  3. CELECOXIB [Suspect]
     Active Substance: CELECOXIB
     Indication: Product used for unknown indication
     Dosage: UNK
     Route: 065
  4. DULOXETINE HYDROCHLORIDE [Suspect]
     Active Substance: DULOXETINE HYDROCHLORIDE
     Indication: Product used for unknown indication
     Dosage: UNK
     Route: 065
  5. AMLODIPINE [Suspect]
     Active Substance: AMLODIPINE BESYLATE
     Indication: Product used for unknown indication
     Dosage: UNK
  6. VIBEGRON [Suspect]
     Active Substance: VIBEGRON
     Indication: Product used for unknown indication
     Dosage: UNK
     Route: 065
  7. ETIZOLAM [Suspect]
     Active Substance: ETIZOLAM
     Indication: Product used for unknown indication
     Dosage: UNK
     Route: 065
  8. BUCILLAMINE [Concomitant]
     Active Substance: BUCILLAMINE
     Dosage: ONGOING
  9. ALFACALCIDOL [Concomitant]
     Active Substance: ALFACALCIDOL
     Dosage: ONGOING
  10. ACETAMINOPHEN [Concomitant]
     Active Substance: ACETAMINOPHEN
     Dosage: ONGOING
  11. AZOSEMIDE [Concomitant]
     Active Substance: AZOSEMIDE
     Dosage: ONGOING
  12. MAGNESIUM OXIDE [Concomitant]
     Active Substance: MAGNESIUM OXIDE
     Dosage: ONGOING
  13. SENNOSIDES [Concomitant]
     Active Substance: SENNOSIDES
     Dosage: ONGOING
  14. PREDNISOLONE [Concomitant]
     Active Substance: PREDNISOLONE

REACTIONS (7)
  - Fall [Unknown]
  - Decreased appetite [Recovering/Resolving]
  - Defaecation disorder [Recovering/Resolving]
  - Femur fracture [Unknown]
  - Urinary retention postoperative [Recovering/Resolving]
  - Hypotension [Recovering/Resolving]
  - Somnolence [Recovering/Resolving]
